FAERS Safety Report 5453091-3 (Version None)
Quarter: 2007Q3

REPORT INFORMATION
  Report Type: 
  Country: None (occurrence: None)
  Receive Date: 20070914
  Receipt Date: 20070904
  Transmission Date: 20080115
  Serious: Yes (Other)
  Sender: FDA-Public Use
  Company Number: AU-PFIZER INC-2007074674

PATIENT
  Sex: Male

DRUGS (1)
  1. CAVERJECT [Suspect]

REACTIONS (4)
  - ERECTION INCREASED [None]
  - PENILE PAIN [None]
  - PENILE SIZE REDUCED [None]
  - PROSTATIC OPERATION [None]
